FAERS Safety Report 5523259-6 (Version None)
Quarter: 2007Q4

REPORT INFORMATION
  Report Type: 
  Country: None (occurrence: None)
  Receive Date: 20071121
  Receipt Date: 20071114
  Transmission Date: 20080405
  Serious: No
  Sender: FDA-Public Use
  Company Number: FR-BAXTER-2007BH006635

PATIENT
  Age: 83 Year
  Sex: Male
  Weight: 64 kg

DRUGS (11)
  1. GAMMAGARD LIQUID [Suspect]
     Indication: IDIOPATHIC THROMBOCYTOPENIC PURPURA
     Route: 042
     Dates: start: 20070708, end: 20070709
  2. GAMMAGARD LIQUID [Suspect]
     Route: 042
     Dates: start: 20070708, end: 20070709
  3. BACTRIM [Concomitant]
     Dosage: DOSE UNIT:UNKNOWN
     Route: 065
  4. SPECIAFOLDINE [Concomitant]
     Dosage: DOSE UNIT:UNKNOWN
     Route: 065
  5. NAFTILUX [Concomitant]
     Dosage: DOSE UNIT:UNKNOWN
     Route: 065
  6. ROCEPHIN [Concomitant]
     Indication: PNEUMOCYSTIS JIROVECI PNEUMONIA
     Route: 065
     Dates: start: 20070708, end: 20070709
  7. CIPROFLOXACIN HCL [Concomitant]
     Indication: PNEUMOCYSTIS JIROVECI PNEUMONIA
     Route: 065
     Dates: start: 20070708, end: 20070708
  8. ACETAMINOPHEN [Concomitant]
     Route: 065
     Dates: start: 20070708, end: 20070709
  9. PERFALGAN [Concomitant]
     Route: 065
     Dates: start: 20070708, end: 20070709
  10. XATRAL /FRA/ [Concomitant]
     Dosage: DOSE UNIT:UNKNOWN
     Route: 065
  11. CORTANCYL [Concomitant]
     Dosage: DOSE UNIT:UNKNOWN
     Route: 065

REACTIONS (1)
  - RENAL FAILURE [None]
